FAERS Safety Report 9914147 (Version 3)
Quarter: 2014Q1

REPORT INFORMATION
  Report Type: Spontaneous
  Country: JP (occurrence: JP)
  Receive Date: 20140220
  Receipt Date: 20140314
  Transmission Date: 20141002
  Serious: Yes (Other)
  Sender: FDA-Public Use
  Company Number: JP-PFIZER INC-2014045377

PATIENT
  Age: 79 Year
  Sex: Female

DRUGS (4)
  1. HALCION [Suspect]
     Indication: INSOMNIA
     Dosage: 2 DF, UNK
     Route: 048
  2. HALCION [Suspect]
     Dosage: 3 DF, UNK
     Route: 048
  3. HALCION [Suspect]
     Dosage: 4 DF, UNK
     Route: 048
  4. MYSLEE [Concomitant]
     Route: 048

REACTIONS (2)
  - Delirium [Unknown]
  - Drug ineffective [Unknown]
